FAERS Safety Report 24082213 (Version 3)
Quarter: 2025Q2

REPORT INFORMATION
  Report Type: Spontaneous
  Country: US (occurrence: US)
  Receive Date: 20240712
  Receipt Date: 20250401
  Transmission Date: 20250717
  Serious: No
  Sender: FDC LIMITED
  Company Number: US-FDC-2024USSPO00482

PATIENT
  Sex: Female

DRUGS (1)
  1. TIMOLOL MALEATE [Suspect]
     Active Substance: TIMOLOL MALEATE
     Indication: Product used for unknown indication
     Dosage: ONE DROP IN EACH EYE
     Route: 047
     Dates: start: 202406

REACTIONS (1)
  - Eye pain [Not Recovered/Not Resolved]

NARRATIVE: CASE EVENT DATE: 20240101
